FAERS Safety Report 21434184 (Version 2)
Quarter: 2022Q4

REPORT INFORMATION
  Report Type: Report from Study
  Country: CO (occurrence: CO)
  Receive Date: 20221010
  Receipt Date: 20221014
  Transmission Date: 20230113
  Serious: Yes (Other)
  Sender: FDA-Public Use
  Company Number: CO-NOVARTISPH-NVSC2022CO225568

PATIENT
  Sex: Female
  Weight: 36 kg

DRUGS (1)
  1. OMNITROPE [Suspect]
     Active Substance: SOMATROPIN
     Indication: Turner^s syndrome
     Dosage: 1.8 MG, QD
     Route: 058
     Dates: start: 20220422

REACTIONS (3)
  - Growth failure [Unknown]
  - Ovarian disorder [Unknown]
  - Drug ineffective [Unknown]
